FAERS Safety Report 9689763 (Version 1)
Quarter: 2013Q4

REPORT INFORMATION
  Report Type: Report from Study
  Country: US (occurrence: US)
  Receive Date: 20131115
  Receipt Date: 20131115
  Transmission Date: 20140711
  Serious: Yes (Other)
  Sender: FDA-Public Use
  Company Number: US-JNJFOC-20131104372

PATIENT
  Age: 59 Year
  Sex: Female
  Weight: 70.31 kg

DRUGS (7)
  1. REMICADE [Suspect]
     Indication: RHEUMATOID ARTHRITIS
     Route: 042
     Dates: end: 20131018
  2. REMICADE [Suspect]
     Indication: RHEUMATOID ARTHRITIS
     Route: 042
     Dates: start: 20131018
  3. ZIPRASIDONE [Concomitant]
     Indication: ANXIETY
     Route: 048
     Dates: start: 2012
  4. ZIPRASIDONE [Concomitant]
     Indication: ANXIETY
     Route: 048
     Dates: end: 2012
  5. FLUOXETIN [Concomitant]
     Indication: DEPRESSION
     Dosage: 20 MG/40 MG; 3-4 YEARS
     Route: 048
     Dates: start: 2012
  6. CYMBALTA [Concomitant]
     Indication: DEPRESSION
     Dosage: 3-4 YEARS
     Route: 048
  7. LAMOTRIGINE [Concomitant]
     Indication: CONVULSION
     Route: 048
     Dates: start: 2009

REACTIONS (3)
  - Osteoporosis [Not Recovered/Not Resolved]
  - Ligament sprain [Recovered/Resolved]
  - Anxiety [Unknown]
